FAERS Safety Report 10203239 (Version 1)
Quarter: 2014Q2

REPORT INFORMATION
  Report Type: Spontaneous
  Country: NO (occurrence: NO)
  Receive Date: 20140529
  Receipt Date: 20140529
  Transmission Date: 20141212
  Serious: Yes (Death)
  Sender: FDA-Public Use
  Company Number: NO-ROCHE-1403020

PATIENT
  Sex: Male

DRUGS (6)
  1. RIVOTRIL [Suspect]
     Indication: EPILEPSY
     Route: 065
  2. LAMICTAL [Suspect]
     Indication: EPILEPSY
     Route: 065
  3. TEGRETOL [Suspect]
     Indication: EPILEPSY
     Route: 065
  4. KEPPRA [Suspect]
     Indication: EPILEPSY
     Route: 065
  5. TRIMONIL RETARD [Suspect]
     Indication: EPILEPSY
     Route: 065
  6. NEURONTIN (GABAPENTIN) [Suspect]
     Indication: EPILEPSY
     Route: 065

REACTIONS (12)
  - Acute hepatic failure [Fatal]
  - Liver disorder [None]
  - Diabetic ketoacidosis [None]
  - Liver transplant [None]
  - Heart rate decreased [None]
  - Hypotension [None]
  - Hepatic necrosis [None]
  - Toxicity to various agents [None]
  - Alcohol poisoning [None]
  - Conduction disorder [None]
  - Hepatomegaly [None]
  - Troponin increased [None]
